FAERS Safety Report 5608884-6 (Version None)
Quarter: 2008Q1

REPORT INFORMATION
  Report Type: 
  Country: None (occurrence: None)
  Receive Date: 20080131
  Receipt Date: 20080123
  Transmission Date: 20080703
  Serious: Yes (Hospitalization, Other)
  Sender: FDA-Public Use
  Company Number: ES-BAYER-200715541GDS

PATIENT
  Age: 70 Year
  Sex: Male
  Weight: 70 kg

DRUGS (3)
  1. SORAFENIB [Suspect]
     Indication: HEPATIC NEOPLASM MALIGNANT
     Route: 048
     Dates: start: 20070704, end: 20070906
  2. SORAFENIB [Suspect]
     Route: 048
     Dates: start: 20070907
  3. FERROGRADUMET [Concomitant]
     Indication: ANAEMIA
     Route: 048
     Dates: start: 20070405

REACTIONS (2)
  - DIARRHOEA [None]
  - PERIANAL ABSCESS [None]
